FAERS Safety Report 11269278 (Version 1)
Quarter: 2015Q3

REPORT INFORMATION
  Report Type: Spontaneous
  Country: GB (occurrence: GB)
  Receive Date: 20150714
  Receipt Date: 20150714
  Transmission Date: 20151125
  Serious: Yes (Other)
  Sender: FDA-Public Use
  Company Number: GB-ACCORD-031963

PATIENT
  Age: 77 Year
  Sex: Male
  Weight: 85 kg

DRUGS (2)
  1. FINASTERIDE. [Concomitant]
     Active Substance: FINASTERIDE
     Dosage: TAKEN FOR CIRCA 10 YEARS WITH NO SIDE EFFECTS
  2. RAMIPRIL. [Suspect]
     Active Substance: RAMIPRIL
     Indication: CORONARY ARTERY BYPASS
     Route: 048
     Dates: start: 20141223

REACTIONS (2)
  - Gynaecomastia [Not Recovered/Not Resolved]
  - Nipple pain [Unknown]

NARRATIVE: CASE EVENT DATE: 20150101
